FAERS Safety Report 18794632 (Version 4)
Quarter: 2021Q2

REPORT INFORMATION
  Report Type: Spontaneous
  Country: US (occurrence: US)
  Receive Date: 20210127
  Receipt Date: 20210409
  Transmission Date: 20210717
  Serious: Yes (Hospitalization, Other)
  Sender: FDA-Public Use
  Company Number: US-TEVA-2021-US-1870812

PATIENT
  Age: 57 Year
  Sex: Female

DRUGS (1)
  1. ADDERALL XR [Suspect]
     Active Substance: AMPHETAMINE ASPARTATE\AMPHETAMINE SULFATE\DEXTROAMPHETAMINE SACCHARATE\DEXTROAMPHETAMINE SULFATE
     Indication: ATTENTION DEFICIT HYPERACTIVITY DISORDER
     Route: 065
     Dates: start: 20191018, end: 20200625

REACTIONS (12)
  - Hospitalisation [Recovered/Resolved]
  - Balance disorder [Unknown]
  - Dyskinesia [Recovered/Resolved]
  - Urinary retention [Recovered/Resolved]
  - Head titubation [Recovered/Resolved]
  - Urinary retention [Recovered/Resolved]
  - Urinary tract disorder [Recovered/Resolved]
  - Psychotic disorder [Recovered/Resolved]
  - Movement disorder [Not Recovered/Not Resolved]
  - Paranoia [Unknown]
  - Visual impairment [Recovered/Resolved]
  - Feeling abnormal [Recovered/Resolved]

NARRATIVE: CASE EVENT DATE: 202006
